FAERS Safety Report 9606779 (Version 2)
Quarter: 2013Q4

REPORT INFORMATION
  Report Type: Spontaneous
  Country: US (occurrence: US)
  Receive Date: 20131008
  Receipt Date: 20131008
  Transmission Date: 20140711
  Serious: No
  Sender: FDA-Public Use
  Company Number: US-AMGEN-USASP2013059908

PATIENT
  Age: 71 Year
  Sex: Female
  Weight: 45.35 kg

DRUGS (8)
  1. PROLIA [Suspect]
     Indication: OSTEOPOROSIS POSTMENOPAUSAL
     Dosage: 60 MG, Q6MO
     Route: 058
     Dates: start: 20130815
  2. CITALOPRAM [Concomitant]
     Route: 065
  3. COREG [Concomitant]
     Route: 065
  4. CAPTOPRIL [Concomitant]
     Route: 065
  5. LASIX                              /00032601/ [Concomitant]
     Route: 065
  6. POTASSIUM [Concomitant]
  7. PLAVIX [Concomitant]
     Route: 065
  8. ASPIRIN [Concomitant]
     Dosage: 81 UNK, UNK
     Route: 065

REACTIONS (7)
  - Petechiae [Recovered/Resolved]
  - Burning sensation [Recovered/Resolved]
  - Eye pruritus [Unknown]
  - Skin mass [Unknown]
  - Feeling hot [Unknown]
  - Pruritus [Unknown]
  - Erythema [Unknown]
